FAERS Safety Report 5890702-2 (Version None)
Quarter: 2008Q3

REPORT INFORMATION
  Report Type: 
  Country: None (occurrence: None)
  Receive Date: 20080922
  Receipt Date: 20080916
  Transmission Date: 20090109
  Serious: Yes (Hospitalization)
  Sender: FDA-Public Use
  Company Number: IT-AVENTIS-200814869EU

PATIENT
  Age: 67 Year
  Sex: Female

DRUGS (3)
  1. CLEXANE [Suspect]
     Route: 058
     Dates: start: 20080730, end: 20080831
  2. PLAVIX [Suspect]
     Route: 048
     Dates: start: 20080730, end: 20080831
  3. SINVACOR [Suspect]
     Indication: HYPERCHOLESTEROLAEMIA
     Route: 048
     Dates: start: 20080730, end: 20080831

REACTIONS (4)
  - ANAEMIA [None]
  - DIARRHOEA [None]
  - HYPERAMYLASAEMIA [None]
  - MELAENA [None]
